FAERS Safety Report 16046092 (Version 1)
Quarter: 2019Q2

REPORT INFORMATION
  Report Type: Spontaneous
  Country: US (occurrence: US)
  Receive Date: 20190307
  Receipt Date: 20190307
  Transmission Date: 20190711
  Serious: No
  Sender: FDA-Public Use
  Company Number: None

PATIENT
  Age: 54 Year
  Sex: Female
  Weight: 76.5 kg

DRUGS (2)
  1. MEDICAL MARIJUANA [Concomitant]
     Active Substance: CANNABIS SATIVA SUBSP. INDICA TOP
  2. RECLAST [Suspect]
     Active Substance: ZOLEDRONIC ACID
     Indication: OSTEOPENIA
     Dates: start: 20190228

REACTIONS (9)
  - Feeling cold [None]
  - Hypersomnia [None]
  - Musculoskeletal stiffness [None]
  - Pain [None]
  - Hypokinesia [None]
  - Back pain [None]
  - Headache [None]
  - Spinal pain [None]
  - Chills [None]

NARRATIVE: CASE EVENT DATE: 20190228
